FAERS Safety Report 9515870 (Version 1)
Quarter: 2013Q3

REPORT INFORMATION
  Report Type: Spontaneous
  Country: DE (occurrence: None)
  Receive Date: 20130909
  Receipt Date: 20130909
  Transmission Date: 20140515
  Serious: Yes (Other)
  Sender: FDA-Public Use
  Company Number: 2013250469

PATIENT
  Sex: Female

DRUGS (2)
  1. FRAGMIN P FORTE [Suspect]
  2. ASPIRIN (ACETYLSALICYLIC ACID) [Concomitant]

REACTIONS (4)
  - Blood pressure systolic increased [None]
  - Tremor [None]
  - Pain [None]
  - Discomfort [None]
